FAERS Safety Report 25182288 (Version 1)
Quarter: 2025Q2

REPORT INFORMATION
  Report Type: Spontaneous
  Country: US (occurrence: US)
  Receive Date: 20250410
  Receipt Date: 20250410
  Transmission Date: 20250716
  Serious: No
  Sender: KINIKSA PHARMACEUTICALS
  Company Number: US-Kiniksa Pharmaceuticals Ltd.-2024KPU001018

PATIENT
  Age: 75 Year
  Sex: Male

DRUGS (3)
  1. ARCALYST [Suspect]
     Active Substance: RILONACEPT
     Indication: Pericarditis
     Dosage: LOADING DOSE
     Route: 058
     Dates: start: 20240617
  2. ARCALYST [Suspect]
     Active Substance: RILONACEPT
     Route: 058
     Dates: start: 20240624
  3. COLCHICINE [Concomitant]
     Active Substance: COLCHICINE
     Indication: Product used for unknown indication

REACTIONS (12)
  - Dysphonia [Unknown]
  - Dyspnoea [Unknown]
  - Drug ineffective [Unknown]
  - White blood cell count decreased [Unknown]
  - Dyspnoea [Unknown]
  - Unevaluable event [Unknown]
  - Injection site discharge [Unknown]
  - Injection site mass [Unknown]
  - Injection site mass [Unknown]
  - Injection site erythema [Unknown]
  - Injection site pruritus [Unknown]
  - Injection site rash [Not Recovered/Not Resolved]

NARRATIVE: CASE EVENT DATE: 20240617
